FAERS Safety Report 7891259-7 (Version None)
Quarter: 2011Q4

REPORT INFORMATION
  Report Type: 
  Country: None (occurrence: None)
  Receive Date: 20111103
  Receipt Date: 20111025
  Transmission Date: 20120403
  Serious: Yes (Hospitalization, Other)
  Sender: FDA-Public Use
  Company Number: US-ASTRAZENECA-2010SE45725

PATIENT
  Age: 57 Year
  Sex: Male
  Weight: 108.9 kg

DRUGS (29)
  1. LEXAPRO [Concomitant]
     Indication: ANTIDEPRESSANT THERAPY
  2. DIAZEPAM [Concomitant]
     Indication: BACK PAIN
  3. DIAZEPAM [Concomitant]
     Indication: MUSCLE DISORDER
  4. SEROQUEL [Suspect]
     Indication: NIGHTMARE
     Route: 048
     Dates: start: 20020101, end: 20100915
  5. SEROQUEL [Suspect]
     Indication: DEPRESSION
     Route: 048
     Dates: start: 20020101, end: 20100915
  6. SEROQUEL [Suspect]
     Route: 048
     Dates: start: 20100101
  7. SEROQUEL [Suspect]
     Route: 048
     Dates: start: 20070101
  8. SEROQUEL [Suspect]
     Route: 048
     Dates: start: 20100920
  9. SEROQUEL [Suspect]
     Route: 048
     Dates: start: 20100101
  10. SEROQUEL [Suspect]
     Indication: BIPOLAR DISORDER
     Route: 048
     Dates: start: 20020101, end: 20100915
  11. SEROQUEL [Suspect]
     Route: 048
     Dates: start: 20100920
  12. SEROQUEL [Suspect]
     Route: 048
     Dates: start: 20100920
  13. SEROQUEL [Suspect]
     Route: 048
     Dates: start: 20100918, end: 20100919
  14. SEROQUEL [Suspect]
     Route: 048
     Dates: start: 20100920
  15. SEROQUEL [Suspect]
     Route: 048
     Dates: start: 20100101
  16. SEROQUEL [Suspect]
     Route: 048
     Dates: start: 20100101
  17. SEROQUEL [Suspect]
     Indication: DRUG DEPENDENCE
     Route: 048
     Dates: start: 20020101, end: 20100915
  18. SEROQUEL [Suspect]
     Route: 048
     Dates: start: 20100920
  19. SEROQUEL [Suspect]
     Route: 048
     Dates: start: 20070101
  20. LEXAPRO [Concomitant]
     Indication: THINKING ABNORMAL
  21. SEROQUEL [Suspect]
     Route: 048
     Dates: start: 20100918, end: 20100919
  22. SEROQUEL [Suspect]
     Route: 048
     Dates: start: 20100918, end: 20100919
  23. SEROQUEL [Suspect]
     Route: 048
     Dates: start: 20070101
  24. SEROQUEL [Suspect]
     Route: 048
     Dates: start: 20070101
  25. SEROQUEL [Suspect]
     Indication: THINKING ABNORMAL
     Route: 048
     Dates: start: 20020101, end: 20100915
  26. SEROQUEL [Suspect]
     Route: 048
     Dates: start: 20100918, end: 20100919
  27. SEROQUEL [Suspect]
     Route: 048
     Dates: start: 20100918, end: 20100919
  28. SEROQUEL [Suspect]
     Route: 048
     Dates: start: 20100101
  29. SEROQUEL [Suspect]
     Route: 048
     Dates: start: 20070101

REACTIONS (35)
  - SURGERY [None]
  - DEPRESSED MOOD [None]
  - ANXIETY [None]
  - MOOD SWINGS [None]
  - MIDDLE INSOMNIA [None]
  - DYSARTHRIA [None]
  - ABNORMAL DREAMS [None]
  - THERAPEUTIC RESPONSE UNEXPECTED [None]
  - SUICIDAL IDEATION [None]
  - FEELING ABNORMAL [None]
  - FLAT AFFECT [None]
  - CONSTIPATION [None]
  - FUNGAL SKIN INFECTION [None]
  - WRONG TECHNIQUE IN DRUG USAGE PROCESS [None]
  - INCORRECT DOSE ADMINISTERED [None]
  - PULMONARY THROMBOSIS [None]
  - MALAISE [None]
  - RHINORRHOEA [None]
  - NIGHTMARE [None]
  - DRUG DOSE OMISSION [None]
  - THROMBOSIS [None]
  - QUALITY OF LIFE DECREASED [None]
  - ABNORMAL BEHAVIOUR [None]
  - LIBIDO DECREASED [None]
  - GAIT DISTURBANCE [None]
  - LETHARGY [None]
  - NASAL NEOPLASM [None]
  - BACK PAIN [None]
  - SOMNOLENCE [None]
  - VISION BLURRED [None]
  - AGITATION [None]
  - HYPERSOMNIA [None]
  - HEADACHE [None]
  - EMOTIONAL DISTRESS [None]
  - DISORIENTATION [None]
